FAERS Safety Report 18770157 (Version 1)
Quarter: 2021Q1

REPORT INFORMATION
  Report Type: Spontaneous
  Country: US (occurrence: US)
  Receive Date: 20210121
  Receipt Date: 20210121
  Transmission Date: 20210419
  Serious: No
  Sender: FDA-Public Use
  Company Number: US-ZOGENIX INTERNATIONAL LIMITED, A WHOLLY OWNED SUBSIDIARY OF ZOGENIX, INC.-2020ZX000063

PATIENT
  Age: 14 Year
  Sex: Female

DRUGS (9)
  1. FINTEPLA [Suspect]
     Active Substance: FENFLURAMINE
     Indication: SEVERE MYOCLONIC EPILEPSY OF INFANCY
     Route: 048
     Dates: start: 20200909, end: 20200922
  2. KEPPRA [Concomitant]
     Active Substance: LEVETIRACETAM
     Indication: SEIZURE
  3. EPIDIOLEX [Concomitant]
     Active Substance: CANNABIDIOL
     Indication: SEIZURE
  4. DIAZEPAM. [Concomitant]
     Active Substance: DIAZEPAM
     Indication: SEIZURE
  5. ONFI [Concomitant]
     Active Substance: CLOBAZAM
     Indication: SEIZURE
  6. FINTEPLA [Suspect]
     Active Substance: FENFLURAMINE
     Route: 048
     Dates: start: 20200923
  7. KLONOPIN [Concomitant]
     Active Substance: CLONAZEPAM
     Indication: PRODUCT USED FOR UNKNOWN INDICATION
  8. BANZEL [Concomitant]
     Active Substance: RUFINAMIDE
     Indication: SEIZURE
  9. FELBAMATE. [Concomitant]
     Active Substance: FELBAMATE
     Indication: SEIZURE

REACTIONS (2)
  - Diarrhoea [Recovered/Resolved]
  - Fatigue [Not Recovered/Not Resolved]
